FAERS Safety Report 18284782 (Version 5)
Quarter: 2022Q3

REPORT INFORMATION
  Report Type: Spontaneous
  Country: US (occurrence: US)
  Receive Date: 20200918
  Receipt Date: 20220914
  Transmission Date: 20221026
  Serious: Yes (Other)
  Sender: FDA-Public Use
  Company Number: US-PFIZER INC-2020361750

PATIENT
  Age: 40 Year
  Sex: Male

DRUGS (1)
  1. XELJANZ XR [Suspect]
     Active Substance: TOFACITINIB CITRATE
     Indication: Lupus-like syndrome
     Dosage: 11 MG, DAILY
     Route: 048
     Dates: start: 20200915

REACTIONS (13)
  - Lupus-like syndrome [Unknown]
  - Autoimmune disorder [Unknown]
  - Off label use [Unknown]
  - Gait disturbance [Unknown]
  - Joint swelling [Unknown]
  - Muscular weakness [Unknown]
  - Headache [Unknown]
  - Stress [Unknown]
  - Illness [Unknown]
  - Joint noise [Not Recovered/Not Resolved]
  - Therapeutic response unexpected [Unknown]
  - Abdominal pain upper [Unknown]
  - Nasopharyngitis [Unknown]

NARRATIVE: CASE EVENT DATE: 20200901
